FAERS Safety Report 4524152-8 (Version None)
Quarter: 2004Q4

REPORT INFORMATION
  Report Type: 
  Country: None (occurrence: None)
  Receive Date: 20041209
  Receipt Date: 20041123
  Transmission Date: 20050328
  Serious: No
  Sender: FDA-Public Use
  Company Number: 2004GB02442

PATIENT
  Age: 78 Year
  Sex: Male

DRUGS (2)
  1. GEFITINIB [Suspect]
     Indication: NON-SMALL CELL LUNG CANCER METASTATIC
     Dosage: 250 MG QD PO
     Route: 048
     Dates: start: 20031007, end: 20031216
  2. FRUSEMIDE [Concomitant]

REACTIONS (4)
  - CARDIAC FAILURE [None]
  - DISEASE PROGRESSION [None]
  - LUNG CANCER METASTATIC [None]
  - RASH [None]
